FAERS Safety Report 8591957-6 (Version None)
Quarter: 2012Q3

REPORT INFORMATION
  Report Type: 
  Country: None (occurrence: None)
  Receive Date: 20120814
  Receipt Date: 20120809
  Transmission Date: 20120928
  Serious: Yes (Other)
  Sender: FDA-Public Use
  Company Number: 2012SP002237

PATIENT
  Age: 48 Year
  Sex: Male

DRUGS (2)
  1. LATUDA [Suspect]
     Indication: SCHIZOPHRENIA, PARANOID TYPE
     Route: 048
     Dates: start: 20111215, end: 20120508
  2. DEPAKOTE ER [Suspect]
     Indication: MOOD SWINGS

REACTIONS (2)
  - HOMICIDE [None]
  - PHYSICAL ASSAULT [None]
